FAERS Safety Report 6079639-6 (Version None)
Quarter: 2009Q1

REPORT INFORMATION
  Report Type: 
  Country: None (occurrence: None)
  Receive Date: 20090211
  Receipt Date: 20090204
  Transmission Date: 20090719
  Serious: Yes (Hospitalization)
  Sender: FDA-Public Use
  Company Number: DSA_33170_2009

PATIENT
  Age: 70 Year
  Sex: Male

DRUGS (4)
  1. ENALAPRIL MALEATE [Suspect]
     Indication: HYPERTENSION
     Dosage: DF ORAL
     Route: 048
     Dates: end: 20080220
  2. DILTIAZEM HCL [Suspect]
     Indication: HYPERTENSION
     Dosage: DF ORAL
     Route: 048
     Dates: end: 20080215
  3. FUROSEMIDE [Concomitant]
     Indication: HYPERTENSION
     Dosage: DF ORAL
     Route: 048
  4. AMIODARONE HCL [Suspect]

REACTIONS (4)
  - ARRHYTHMIA [None]
  - ODYNOPHAGIA [None]
  - PYREXIA [None]
  - RENAL FAILURE ACUTE [None]
